FAERS Safety Report 14538814 (Version 1)
Quarter: 2018Q1

REPORT INFORMATION
  Report Type: Spontaneous
  Country: US (occurrence: US)
  Receive Date: 20180216
  Receipt Date: 20180216
  Transmission Date: 20180509
  Serious: No
  Sender: FDA-Public Use
  Company Number: US-JNJFOC-20180137903

PATIENT
  Age: 8 Decade
  Sex: Female
  Weight: 52.16 kg

DRUGS (4)
  1. TYLENOL EXTRA STRENGTH [Suspect]
     Active Substance: ACETAMINOPHEN
     Indication: MULTIPLE SCLEROSIS
     Dosage: SOME TIMES IN THE DAY BUT ALWAYS AT NIGHT
     Route: 065
  2. TYLENOL EXTRA STRENGTH [Suspect]
     Active Substance: ACETAMINOPHEN
     Indication: ARTHRALGIA
     Dosage: SOME TIMES IN THE DAY BUT ALWAYS AT NIGHT
     Route: 065
  3. TYLENOL 8 HR ARTHRITIS PAIN [Suspect]
     Active Substance: ACETAMINOPHEN
     Indication: ARTHRALGIA
     Dosage: SOME TIMES IN THE DAY BUT ALWAYS AT NIGHT
     Route: 065
  4. TYLENOL 8 HR ARTHRITIS PAIN [Suspect]
     Active Substance: ACETAMINOPHEN
     Indication: MULTIPLE SCLEROSIS
     Dosage: SOME TIMES IN THE DAY BUT ALWAYS AT NIGHT
     Route: 065

REACTIONS (3)
  - Therapeutic response unexpected [Unknown]
  - Night sweats [Recovered/Resolved]
  - Product use in unapproved indication [Unknown]
